FAERS Safety Report 5836288-X (Version None)
Quarter: 2008Q3

REPORT INFORMATION
  Report Type: 
  Country: None (occurrence: None)
  Receive Date: 20080801
  Receipt Date: 20071218
  Transmission Date: 20090109
  Serious: Yes (Other)
  Sender: FDA-Public Use
  Company Number: 165461USA

PATIENT
  Sex: Female

DRUGS (6)
  1. METHAZOLAMIDE [Suspect]
     Indication: GLAUCOMA
     Dosage: 100 MG (50MG,2 IN 1 D)
     Dates: start: 20050609
  2. COSOPT [Concomitant]
  3. BRIMONIDINE TARTRATE [Concomitant]
  4. LATANOPROST [Concomitant]
  5. VALSARTAN [Concomitant]
  6. FUROSEMIDE [Concomitant]

REACTIONS (16)
  - ASTHENIA [None]
  - BLISTER [None]
  - DIALYSIS DEVICE COMPLICATION [None]
  - EYE SWELLING [None]
  - EYELID OEDEMA [None]
  - FATIGUE [None]
  - INFLUENZA [None]
  - INFLUENZA LIKE ILLNESS [None]
  - OCULAR HYPERAEMIA [None]
  - PRURITUS [None]
  - PYREXIA [None]
  - RASH [None]
  - RASH MACULAR [None]
  - SKIN BURNING SENSATION [None]
  - SKIN EXFOLIATION [None]
  - STEVENS-JOHNSON SYNDROME [None]
